FAERS Safety Report 8256351-6 (Version None)
Quarter: 2012Q2

REPORT INFORMATION
  Report Type: 
  Country: None (occurrence: None)
  Receive Date: 20120403
  Receipt Date: 20120323
  Transmission Date: 20120825
  Serious: Yes (Other)
  Sender: FDA-Public Use
  Company Number: US-ALEXION-A201200488

PATIENT
  Sex: Female
  Weight: 74.1 kg

DRUGS (6)
  1. SOLIRIS [Suspect]
     Indication: PAROXYSMAL NOCTURNAL HAEMOGLOBINURIA
     Dosage: 900 MG, Q2W
     Route: 042
     Dates: start: 20080601
  2. DILAUDID [Concomitant]
     Indication: PAIN
     Dosage: 2 MG, PRN
  3. ARIXTRA [Concomitant]
     Dosage: 7.5 MG, QD
  4. SERTRALINE HYDROCHLORIDE [Concomitant]
     Dosage: 25 MG, UNK
  5. LORAZEPAM [Concomitant]
     Indication: ANXIETY
     Dosage: 0.5 MG, Q 6 HRS. PRN
  6. LOMOTIL [Concomitant]
     Indication: DIARRHOEA
     Dosage: UNK, PRN

REACTIONS (1)
  - ENTERITIS [None]
